FAERS Safety Report 23296853 (Version 2)
Quarter: 2023Q4

REPORT INFORMATION
  Report Type: Spontaneous
  Country: HR (occurrence: HR)
  Receive Date: 20231214
  Receipt Date: 20231219
  Transmission Date: 20240110
  Serious: Yes (Hospitalization, Other)
  Sender: FDA-Public Use
  Company Number: HR-009507513-2312HRV003743

PATIENT
  Age: 64 Year
  Sex: Male

DRUGS (2)
  1. KEYTRUDA [Suspect]
     Active Substance: PEMBROLIZUMAB
     Indication: Adenocarcinoma
     Dosage: UNK, 8 CYCLES
     Dates: start: 20200520, end: 202011
  2. KEYTRUDA [Suspect]
     Active Substance: PEMBROLIZUMAB
     Dosage: 200 MILLIGRAM, 25 CYCLES
     Dates: start: 202101, end: 202204

REACTIONS (14)
  - Malignant neoplasm progression [Unknown]
  - Colorectal adenoma [Unknown]
  - Vasogenic cerebral oedema [Unknown]
  - Brain herniation [Unknown]
  - Pericardial effusion [Unknown]
  - Large intestinal obstruction [Unknown]
  - Pemphigoid [Unknown]
  - Hepatitis [Unknown]
  - Cerebral radiation injury [Unknown]
  - Wound dehiscence [Unknown]
  - Therapeutic response delayed [Unknown]
  - Pruritus [Unknown]
  - Dermatitis [Unknown]
  - Abdominal operation [Unknown]

NARRATIVE: CASE EVENT DATE: 20200501
